FAERS Safety Report 9192276 (Version 1)
Quarter: 2013Q1

REPORT INFORMATION
  Report Type: Spontaneous
  Country: GB (occurrence: GB)
  Receive Date: 20130327
  Receipt Date: 20130327
  Transmission Date: 20140127
  Serious: No
  Sender: FDA-Public Use
  Company Number: GB-JNJFOC-20130304440

PATIENT
  Age: 54 Year
  Sex: Male

DRUGS (2)
  1. DUROGESIC DTRANS [Suspect]
     Indication: PRODUCT USED FOR UNKNOWN INDICATION
     Route: 062
  2. DUROGESIC DTRANS [Suspect]
     Indication: PRODUCT USED FOR UNKNOWN INDICATION
     Route: 062

REACTIONS (4)
  - Therapeutic response decreased [Unknown]
  - Pain [Unknown]
  - Feeling cold [Unknown]
  - Inappropriate schedule of drug administration [Unknown]
